FAERS Safety Report 7593079-X (Version None)
Quarter: 2011Q3

REPORT INFORMATION
  Report Type: 
  Country: None (occurrence: None)
  Receive Date: 20110706
  Receipt Date: 20110701
  Transmission Date: 20111222
  Serious: Yes (Hospitalization)
  Sender: FDA-Public Use
  Company Number: JP-BAYER-2011-051668

PATIENT
  Age: 49 Year
  Sex: Female

DRUGS (2)
  1. NEXAVAR [Suspect]
     Indication: NEURILEMMOMA MALIGNANT
     Dosage: 400 MG, BID
     Route: 048
     Dates: start: 20101111, end: 20101227
  2. NEXAVAR [Suspect]
     Dosage: 400 MG, QD
     Route: 048
     Dates: start: 20101228, end: 20110104

REACTIONS (3)
  - LIVER DISORDER [None]
  - JAUNDICE [None]
  - PALMAR-PLANTAR ERYTHRODYSAESTHESIA SYNDROME [None]
